FAERS Safety Report 8596030-9 (Version None)
Quarter: 2012Q3

REPORT INFORMATION
  Report Type: 
  Country: None (occurrence: None)
  Receive Date: 20120815
  Receipt Date: 19920624
  Transmission Date: 20120928
  Serious: Yes (Death)
  Sender: FDA-Public Use
  Company Number: US-ROCHE-1101492

PATIENT
  Sex: Female

DRUGS (5)
  1. ACTIVASE [Suspect]
  2. HEPARIN [Concomitant]
     Dosage: 200 UNIT
  3. ACTIVASE [Suspect]
     Indication: ACUTE MYOCARDIAL INFARCTION
  4. ACTIVASE [Suspect]
  5. ASPIRIN [Concomitant]

REACTIONS (1)
  - DEATH [None]
